FAERS Safety Report 10573376 (Version 3)
Quarter: 2015Q2

REPORT INFORMATION
  Report Type: Spontaneous
  Country: US (occurrence: US)
  Receive Date: 20141110
  Receipt Date: 20150513
  Transmission Date: 20150821
  Serious: Yes (Hospitalization, Other)
  Sender: FDA-Public Use
  Company Number: US-BAYER-2014-165633

PATIENT
  Age: 26 Year
  Sex: Female
  Weight: 58.5 kg

DRUGS (1)
  1. MIRENA [Suspect]
     Active Substance: LEVONORGESTREL
     Indication: MENORRHAGIA
     Dosage: 20 MCG/24HR, CONT
     Route: 015
     Dates: start: 20101228, end: 201311

REACTIONS (7)
  - Menorrhagia [None]
  - Uterine perforation [None]
  - Drug ineffective [None]
  - Device issue [None]
  - Ectopic pregnancy with contraceptive device [None]
  - Injury [None]
  - Pain [None]

NARRATIVE: CASE EVENT DATE: 20101228
